FAERS Safety Report 9419722 (Version 1)
Quarter: 2013Q3

REPORT INFORMATION
  Report Type: Spontaneous
  Country: JP (occurrence: None)
  Receive Date: 20130723
  Receipt Date: 20130723
  Transmission Date: 20140515
  Serious: Yes (Disabling)
  Sender: FDA-Public Use
  Company Number: DSJ-2013-15919

PATIENT
  Age: 66 Year
  Sex: Male

DRUGS (2)
  1. OLMETEC [Suspect]
     Indication: PRODUCT USED FOR UNKNOWN INDICATION
     Dates: end: 20090415
  2. MEFRUSIDE [Suspect]
     Indication: PRODUCT USED FOR UNKNOWN INDICATION
     Dates: end: 20090512

REACTIONS (4)
  - Hypotension [None]
  - Anaemia [None]
  - Weight decreased [None]
  - Asthenia [None]
